FAERS Safety Report 7629182-5 (Version None)
Quarter: 2011Q3

REPORT INFORMATION
  Report Type: 
  Country: None (occurrence: None)
  Receive Date: 20110722
  Receipt Date: 20110711
  Transmission Date: 20111222
  Serious: Yes (Hospitalization, Disabling)
  Sender: FDA-Public Use
  Company Number: PHHO2007DK18273

PATIENT
  Sex: Female
  Weight: 73.5 kg

DRUGS (1)
  1. LETROZOLE [Suspect]
     Indication: BREAST CANCER
     Dosage: 2.5 MG, QD
     Route: 048
     Dates: start: 20060124, end: 20061122

REACTIONS (4)
  - ARTERIAL STENOSIS LIMB [None]
  - ARTERIOSCLEROSIS [None]
  - INTERMITTENT CLAUDICATION [None]
  - PERIPHERAL ARTERIAL OCCLUSIVE DISEASE [None]
